FAERS Safety Report 6106145-2 (Version None)
Quarter: 2009Q1

REPORT INFORMATION
  Report Type: 
  Country: None (occurrence: None)
  Receive Date: 20090306
  Receipt Date: 20090226
  Transmission Date: 20090719
  Serious: Yes (Hospitalization)
  Sender: FDA-Public Use
  Company Number: HR-WYE-H08423909

PATIENT
  Age: 75 Year
  Sex: Male

DRUGS (1)
  1. AMIODARONE HCL [Suspect]
     Indication: ATRIAL FIBRILLATION
     Dosage: 50 MG/ML, DOSE UNSPECIFIED
     Route: 042
     Dates: end: 20090201

REACTIONS (5)
  - ARRHYTHMIA [None]
  - HYPERGLYCAEMIA [None]
  - HYPERNATRAEMIA [None]
  - HYPOTENSION [None]
  - LACTIC ACIDOSIS [None]
